FAERS Safety Report 24955905 (Version 4)
Quarter: 2025Q2

REPORT INFORMATION
  Report Type: Spontaneous
  Country: GB (occurrence: GB)
  Receive Date: 20250211
  Receipt Date: 20250403
  Transmission Date: 20250717
  Serious: No
  Sender: PFIZER
  Company Number: GB-PFIZER INC-PV202500013758

PATIENT
  Age: 9 Year
  Sex: Male

DRUGS (1)
  1. GENOTROPIN [Suspect]
     Active Substance: SOMATROPIN
     Indication: Small for dates baby
     Dosage: 1 MG, 1X/DAY
     Route: 058

REACTIONS (10)
  - Asthenia [Unknown]
  - Pain in extremity [Unknown]
  - Injection site pain [Unknown]
  - Drug dose omission by device [Unknown]
  - Lack of administration site rotation [Unknown]
  - Device use issue [Unknown]
  - Device information output issue [Unknown]
  - Device power source issue [Unknown]
  - Device connection issue [Unknown]
  - Product dose omission issue [Unknown]
